FAERS Safety Report 20945605 (Version 1)
Quarter: 2022Q2

REPORT INFORMATION
  Report Type: Spontaneous
  Country: AU (occurrence: AU)
  Receive Date: 20220610
  Receipt Date: 20220610
  Transmission Date: 20220720
  Serious: Yes (Death)
  Sender: FDA-Public Use
  Company Number: AU-ALVOGEN-2022-ALVOGEN-120503

PATIENT
  Age: 45 Year
  Sex: Male

DRUGS (2)
  1. LISINOPRIL [Suspect]
     Active Substance: LISINOPRIL
     Indication: Product used for unknown indication
     Dosage: 25 MG
     Route: 048
  2. ANGIOTENSIN II [Concomitant]
     Active Substance: ANGIOTENSIN II
     Indication: Product used for unknown indication
     Dosage: 8.5-9 UG/MIN FOR APPROX 120 H
     Route: 065

REACTIONS (2)
  - Device related sepsis [Fatal]
  - Overdose [Fatal]
